FAERS Safety Report 19133174 (Version 1)
Quarter: 2021Q2

REPORT INFORMATION
  Report Type: Report from Study
  Country: IT (occurrence: IT)
  Receive Date: 20210413
  Receipt Date: 20210413
  Transmission Date: 20210717
  Serious: Yes (Other)
  Sender: FDA-Public Use
  Company Number: IT-CELGENEUS-ITA-20210401864

PATIENT
  Age: 71 Year
  Sex: Male

DRUGS (3)
  1. LUSPATERCEPT. [Suspect]
     Active Substance: LUSPATERCEPT
     Indication: ANAEMIA
  2. LUSPATERCEPT. [Suspect]
     Active Substance: LUSPATERCEPT
     Indication: MYELODYSPLASTIC SYNDROME
     Dosage: 1.75 MG UNIT AND 1.25 MG UNIT
     Route: 058
     Dates: start: 20210119, end: 20210323
  3. DEFERASIROX. [Concomitant]
     Active Substance: DEFERASIROX
     Indication: PRODUCT USED FOR UNKNOWN INDICATION
     Route: 065

REACTIONS (1)
  - Major depression [Recovering/Resolving]

NARRATIVE: CASE EVENT DATE: 20210323
